FAERS Safety Report 16614464 (Version 1)
Quarter: 2019Q3

REPORT INFORMATION
  Report Type: Spontaneous
  Country: CA (occurrence: CA)
  Receive Date: 20190723
  Receipt Date: 20190723
  Transmission Date: 20191004
  Serious: Yes (Death, Other)
  Sender: FDA-Public Use
  Company Number: CA-BRISTOL-MYERS SQUIBB COMPANY-BMS-2019-068852

PATIENT
  Age: 75 Year
  Sex: Female

DRUGS (3)
  1. CLAVULIN [AMOXICILLIN TRIHYDRATE;CLAVULANATE POTASSIUM] [Concomitant]
     Active Substance: AMOXICILLIN\CLAVULANIC ACID
     Indication: PRODUCT USED FOR UNKNOWN INDICATION
     Dosage: UNK
     Route: 065
  2. COUMADIN [Suspect]
     Active Substance: WARFARIN SODIUM
     Indication: PULMONARY EMBOLISM
     Dosage: UNK
     Route: 065
  3. APIXABAN [Suspect]
     Active Substance: APIXABAN
     Indication: PRODUCT USED FOR UNKNOWN INDICATION
     Dosage: UNK
     Route: 065

REACTIONS (19)
  - Constipation [Fatal]
  - International normalised ratio increased [Fatal]
  - Pulse abnormal [Fatal]
  - Toxicity to various agents [Fatal]
  - Asthenia [Fatal]
  - Toxicologic test abnormal [Fatal]
  - Alanine aminotransferase increased [Fatal]
  - Blood creatinine increased [Fatal]
  - Dyspnoea [Fatal]
  - Heart rate irregular [Fatal]
  - Pericardial haemorrhage [Fatal]
  - Productive cough [Fatal]
  - Hepatic ischaemia [Fatal]
  - Hypotension [Fatal]
  - Nausea [Fatal]
  - Acute kidney injury [Fatal]
  - Vomiting [Fatal]
  - Abdominal pain [Fatal]
  - Cardio-respiratory arrest [Fatal]
